FAERS Safety Report 23040922 (Version 3)
Quarter: 2023Q4

REPORT INFORMATION
  Report Type: Spontaneous
  Country: US (occurrence: US)
  Receive Date: 20231006
  Receipt Date: 20231030
  Transmission Date: 20240110
  Serious: Yes (Death, Life-Threatening, Hospitalization)
  Sender: FDA-Public Use
  Company Number: US-ARGENX-2023-ARGX-US003402

PATIENT

DRUGS (4)
  1. VYVGART [Suspect]
     Active Substance: EFGARTIGIMOD ALFA-FCAB
     Indication: Myasthenia gravis
     Dosage: 700 MG, 1/WEEK FOR 4 WEEKS
     Route: 042
     Dates: start: 20230528, end: 20230618
  2. VYVGART [Suspect]
     Active Substance: EFGARTIGIMOD ALFA-FCAB
     Dosage: 700 MG, 1/WEEK FOR 4 WEEKS
     Route: 042
     Dates: start: 20230717, end: 20230807
  3. PREDNISONE [Concomitant]
     Active Substance: PREDNISONE
     Indication: Myasthenia gravis
     Dosage: 20 MG, DAILY
     Route: 065
  4. MYCOPHENOLATE SODIUM [Concomitant]
     Active Substance: MYCOPHENOLATE SODIUM
     Indication: Myasthenia gravis
     Dosage: 720 MG, BID
     Route: 065

REACTIONS (9)
  - Disseminated varicella zoster virus infection [Unknown]
  - Death [Fatal]
  - Acute respiratory failure [Unknown]
  - Pneumonia pseudomonal [Unknown]
  - Cytomegalovirus hepatitis [Unknown]
  - Encephalitis [Unknown]
  - Haemodynamic instability [Unknown]
  - Wound [Unknown]
  - Encephalopathy [Unknown]

NARRATIVE: CASE EVENT DATE: 20230824
